FAERS Safety Report 7911803-0 (Version None)
Quarter: 2011Q4

REPORT INFORMATION
  Report Type: 
  Country: None (occurrence: None)
  Receive Date: 20111111
  Receipt Date: 20111101
  Transmission Date: 20120403
  Serious: Yes (Other)
  Sender: FDA-Public Use
  Company Number: PHEH2011US06430

PATIENT
  Sex: Male
  Weight: 174 kg

DRUGS (6)
  1. ALLEGRA [Concomitant]
     Dosage: 30 MG, UNK
  2. METFORMIN [Concomitant]
     Dosage: 500 MG, UNK
  3. FLONASE [Concomitant]
     Dosage: 0.05 %, UNK
  4. NAPROXEN (ALEVE) [Concomitant]
     Dosage: 220 MG, UNK
  5. AMBIEN CR [Concomitant]
     Dosage: 12.5 MG, UNK
  6. TASIGNA [Suspect]
     Indication: CHRONIC MYELOID LEUKAEMIA
     Dosage: 400 MG, BID
     Dates: start: 20110920

REACTIONS (1)
  - RASH [None]
